FAERS Safety Report 8266996-5 (Version None)
Quarter: 2012Q2

REPORT INFORMATION
  Report Type: 
  Country: None (occurrence: None)
  Receive Date: 20120409
  Receipt Date: 20120402
  Transmission Date: 20120825
  Serious: No
  Sender: FDA-Public Use
  Company Number: US-PFIZER INC-2012083904

PATIENT
  Sex: Female

DRUGS (6)
  1. LYRICA [Suspect]
     Dosage: 200 MG, 2X/DAY
  2. TEGRETOL [Concomitant]
     Dosage: UNK
  3. IBUPROFEN [Concomitant]
     Dosage: UNK
  4. ATENOLOL [Concomitant]
     Dosage: UNK
  5. NORTRIPTYLINE [Concomitant]
     Dosage: UNK
  6. TIZANIDINE [Concomitant]
     Dosage: UNK

REACTIONS (1)
  - FIBROMYALGIA [None]
